FAERS Safety Report 6007661-4 (Version None)
Quarter: 2008Q4

REPORT INFORMATION
  Report Type: 
  Country: None (occurrence: None)
  Receive Date: 20081217
  Receipt Date: 20080401
  Transmission Date: 20090506
  Serious: No
  Sender: FDA-Public Use
  Company Number: US-ASTRAZENECA-2008UW06486

PATIENT
  Age: 64 Year
  Sex: Female
  Weight: 65.8 kg

DRUGS (4)
  1. CRESTOR [Suspect]
     Indication: BLOOD CHOLESTEROL INCREASED
     Route: 048
     Dates: start: 20080327
  2. COENZYME Q10 [Concomitant]
  3. FISH OIL [Concomitant]
  4. FIBER [Concomitant]

REACTIONS (1)
  - BACK PAIN [None]
